FAERS Safety Report 5557783-7 (Version None)
Quarter: 2007Q4

REPORT INFORMATION
  Report Type: 
  Country: None (occurrence: None)
  Receive Date: 20071214
  Receipt Date: 20071207
  Transmission Date: 20080405
  Serious: Yes (Other)
  Sender: FDA-Public Use
  Company Number: JP-MERCK-0712USA03232

PATIENT

DRUGS (1)
  1. PEPCID [Suspect]
     Route: 051

REACTIONS (1)
  - ANALGESIC ASTHMA SYNDROME [None]
